FAERS Safety Report 18967865 (Version 3)
Quarter: 2021Q2

REPORT INFORMATION
  Report Type: Report from Study
  Country: AR (occurrence: AR)
  Receive Date: 20210304
  Receipt Date: 20210609
  Transmission Date: 20210717
  Serious: Yes (Hospitalization, Other)
  Sender: FDA-Public Use
  Company Number: NVSC2021AR046398

PATIENT
  Age: 57 Year
  Sex: Female

DRUGS (5)
  1. PIQRAY [Suspect]
     Active Substance: ALPELISIB
     Dosage: 2 X 150 MG, ONCE DAILY
     Route: 065
     Dates: start: 20210304
  2. FULVESTRANT. [Suspect]
     Active Substance: FULVESTRANT
     Indication: PRODUCT USED FOR UNKNOWN INDICATION
     Dosage: UNK
     Route: 065
  3. PIQRAY [Suspect]
     Active Substance: ALPELISIB
     Indication: BREAST CANCER METASTATIC
     Dosage: 250 MG, QD (CAPSULE)
     Route: 048
     Dates: start: 20201114
  4. PIQRAY [Suspect]
     Active Substance: ALPELISIB
     Dosage: 2 X 150 MG, ONCE DAILY
     Route: 065
     Dates: start: 20201114, end: 20210225
  5. PANTOPRAZOLE [Concomitant]
     Active Substance: PANTOPRAZOLE
     Indication: GASTRIC DISORDER
     Dosage: UNK
     Route: 065

REACTIONS (5)
  - Hip fracture [Recovering/Resolving]
  - Femur fracture [Recovering/Resolving]
  - Arthralgia [Unknown]
  - Blood glucose increased [Unknown]
  - Fall [Recovering/Resolving]

NARRATIVE: CASE EVENT DATE: 20210223
